FAERS Safety Report 8263393-3 (Version None)
Quarter: 2012Q2

REPORT INFORMATION
  Report Type: 
  Country: None (occurrence: None)
  Receive Date: 20120405
  Receipt Date: 20120402
  Transmission Date: 20120825
  Serious: Yes (Hospitalization)
  Sender: FDA-Public Use
  Company Number: DE-ABBOTT-11P-062-0874258-00

PATIENT
  Sex: Female
  Weight: 54 kg

DRUGS (4)
  1. HUMIRA [Suspect]
     Route: 058
     Dates: start: 20111110
  2. DICLOFENAC SODIUM [Concomitant]
     Indication: RHEUMATOID ARTHRITIS
  3. HUMIRA [Suspect]
     Indication: RHEUMATOID ARTHRITIS
     Route: 058
     Dates: start: 20060606, end: 20110730
  4. CORTISONE [Concomitant]
     Indication: RHEUMATOID ARTHRITIS

REACTIONS (4)
  - INFLAMMATION [None]
  - ARTHRODESIS [None]
  - DEEP VEIN THROMBOSIS [None]
  - FISTULA [None]
